APPROVED DRUG PRODUCT: CYTOTEC
Active Ingredient: MISOPROSTOL
Strength: 0.2MG
Dosage Form/Route: TABLET;ORAL
Application: N019268 | Product #001 | TE Code: AB
Applicant: PFIZER INC
Approved: Dec 27, 1988 | RLD: Yes | RS: Yes | Type: RX